FAERS Safety Report 7525912-1 (Version None)
Quarter: 2011Q2

REPORT INFORMATION
  Report Type: 
  Country: None (occurrence: None)
  Receive Date: 20110606
  Receipt Date: 20110527
  Transmission Date: 20111010
  Serious: Yes (Other)
  Sender: FDA-Public Use
  Company Number: B0723004A

PATIENT
  Age: 75 Year
  Sex: Male

DRUGS (3)
  1. LEVODOPA [Concomitant]
     Dosage: 600MG PER DAY
  2. REQUIP XL [Suspect]
     Indication: PARKINSON'S DISEASE
     Dosage: 12MG PER DAY
     Route: 048
  3. AMANTADINE HCL [Concomitant]

REACTIONS (2)
  - PSYCHOTIC DISORDER [None]
  - HALLUCINATION [None]
